FAERS Safety Report 17148214 (Version 2)
Quarter: 2020Q1

REPORT INFORMATION
  Report Type: Report from Study
  Country: US (occurrence: US)
  Receive Date: 20191212
  Receipt Date: 20200323
  Transmission Date: 20200409
  Serious: No
  Sender: FDA-Public Use
  Company Number: NVSC2019US027440

PATIENT
  Sex: Male

DRUGS (1)
  1. ENTRESTO [Suspect]
     Active Substance: SACUBITRIL\VALSARTAN
     Indication: CARDIAC FAILURE
     Dosage: 1 DF(49 MG OF SACUBITRIL, 51 MG OF VALSARTAN), BID
     Route: 048

REACTIONS (2)
  - Dyspnoea [Unknown]
  - Peripheral swelling [Unknown]
